FAERS Safety Report 6114511-4 (Version None)
Quarter: 2009Q1

REPORT INFORMATION
  Report Type: 
  Country: None (occurrence: None)
  Receive Date: 20090313
  Receipt Date: 20090310
  Transmission Date: 20090719
  Serious: Yes (Other)
  Sender: FDA-Public Use
  Company Number: JP-BRISTOL-MYERS SQUIBB COMPANY-14430532

PATIENT
  Age: 26 Year
  Sex: Male

DRUGS (5)
  1. ZERIT [Suspect]
     Indication: HIV INFECTION
     Route: 048
     Dates: start: 20020910, end: 20090210
  2. REYATAZ [Suspect]
     Indication: HIV INFECTION
     Dosage: THERAPY DATES: 23MAR03-11OCT04 (569 DAYS) 12OCT04-10FEB09 (1583 DAYS)
     Route: 048
     Dates: start: 20030323, end: 20090210
  3. EPIVIR [Suspect]
     Indication: HIV INFECTION
     Route: 048
     Dates: start: 20020910, end: 20090210
  4. KALETRA [Suspect]
     Indication: HIV INFECTION
     Route: 048
     Dates: start: 20020910, end: 20030322
  5. NORVIR [Suspect]
     Indication: HIV INFECTION
     Route: 048
     Dates: start: 20041012, end: 20090210

REACTIONS (2)
  - IMMUNE RECONSTITUTION SYNDROME [None]
  - PULMONARY SARCOIDOSIS [None]
